FAERS Safety Report 16316506 (Version 4)
Quarter: 2019Q4

REPORT INFORMATION
  Report Type: Spontaneous
  Country: AU (occurrence: AU)
  Receive Date: 20190515
  Receipt Date: 20191126
  Transmission Date: 20200122
  Serious: Yes (Life-Threatening, Other)
  Sender: FDA-Public Use
  Company Number: AU-PFIZER INC-2019206864

PATIENT
  Age: 34 Year
  Sex: Male

DRUGS (1)
  1. ROCURONIUM BROMIDE. [Suspect]
     Active Substance: ROCURONIUM BROMIDE
     Indication: GENERAL ANAESTHESIA
     Dosage: UNK

REACTIONS (3)
  - Circulatory collapse [Recovering/Resolving]
  - Cardiac arrest [Recovering/Resolving]
  - Anaphylactic reaction [Recovering/Resolving]
